FAERS Safety Report 10505717 (Version 1)
Quarter: 2014Q4

REPORT INFORMATION
  Report Type: Spontaneous
  Country: US (occurrence: US)
  Receive Date: 20141008
  Receipt Date: 20141008
  Transmission Date: 20150528
  Serious: Yes (Other)
  Sender: FDA-Public Use
  Company Number: US-PFIZER INC-2014273818

PATIENT
  Age: 38 Year
  Sex: Male
  Weight: 113 kg

DRUGS (2)
  1. DILANTIN-125 [Suspect]
     Active Substance: PHENYTOIN
     Indication: EPILEPSY
     Dosage: 100 MG, 2X/DAY (THREE AT NIGHT AND TWO IN MORNING)
     Dates: start: 2007
  2. KLONOPIN [Concomitant]
     Active Substance: CLONAZEPAM
     Indication: ANXIETY
     Dosage: UNK, AS NEEDED

REACTIONS (3)
  - Diabetes mellitus [Unknown]
  - Headache [Unknown]
  - Drug ineffective [Unknown]

NARRATIVE: CASE EVENT DATE: 201403
